FAERS Safety Report 11984484 (Version 1)
Quarter: 2016Q1

REPORT INFORMATION
  Report Type: Spontaneous
  Country: US (occurrence: US)
  Receive Date: 20160201
  Receipt Date: 20160201
  Transmission Date: 20160526
  Serious: No
  Sender: FDA-Public Use
  Company Number: US-KADMON PHARMACEUTICALS, LLC-KAD201504-000827

PATIENT
  Age: 60 Year
  Sex: Female
  Weight: 58.96 kg

DRUGS (9)
  1. RIBAVIRIN. [Suspect]
     Active Substance: RIBAVIRIN
     Indication: HEPATITIS C
     Dosage: TABLET
     Route: 048
     Dates: start: 201503
  2. LEXAPRO [Concomitant]
     Active Substance: ESCITALOPRAM OXALATE
  3. LASIX [Concomitant]
     Active Substance: FUROSEMIDE
  4. LACTULOSE. [Concomitant]
     Active Substance: LACTULOSE
  5. MILK THISTLE [Concomitant]
     Active Substance: MILK THISTLE
     Dosage: CAPSULE
  6. DILAUDID [Concomitant]
     Active Substance: HYDROMORPHONE HYDROCHLORIDE
  7. VIEKIRA PAK [Suspect]
     Active Substance: DASABUVIR\OMBITASVIR\PARITAPREVIR\RITONAVIR
     Indication: HEPATITIS C
     Dosage: TABLET
     Route: 048
     Dates: start: 201503
  8. GINGER CAPSULES [Concomitant]
  9. ALDACTONE [Concomitant]
     Active Substance: SPIRONOLACTONE

REACTIONS (7)
  - Blood potassium decreased [Unknown]
  - Blood glucose increased [Unknown]
  - Globulins increased [Unknown]
  - Blood albumin decreased [Unknown]
  - Blood bilirubin increased [Unknown]
  - Jaundice [Unknown]
  - Pruritus [Unknown]

NARRATIVE: CASE EVENT DATE: 201503
